FAERS Safety Report 7586616-2 (Version None)
Quarter: 2011Q3

REPORT INFORMATION
  Report Type: 
  Country: None (occurrence: None)
  Receive Date: 20110701
  Receipt Date: 20110611
  Transmission Date: 20111222
  Serious: Yes (Hospitalization)
  Sender: FDA-Public Use
  Company Number: TW-ELI_LILLY_AND_COMPANY-TW201106003039

PATIENT
  Age: 54 Year
  Sex: Female

DRUGS (2)
  1. CISPLATIN [Concomitant]
     Dosage: UNK, UNKNOWN
     Route: 065
     Dates: start: 20110607
  2. ALIMTA [Suspect]
     Indication: ADENOCARCINOMA
     Dosage: UNK, UNKNOWNU
     Route: 065
     Dates: start: 20110607

REACTIONS (5)
  - CHEST DISCOMFORT [None]
  - CHEST PAIN [None]
  - RHABDOMYOLYSIS [None]
  - BONE MARROW FAILURE [None]
  - DISCOMFORT [None]
